FAERS Safety Report 22072372 (Version 1)
Quarter: 2023Q1

REPORT INFORMATION
  Report Type: Report from Study
  Country: US (occurrence: US)
  Receive Date: 20230308
  Receipt Date: 20230308
  Transmission Date: 20230418
  Serious: No
  Sender: FDA-Public Use
  Company Number: US-002147023-NVSC2023US051157

PATIENT
  Sex: Female

DRUGS (7)
  1. COSENTYX [Suspect]
     Active Substance: SECUKINUMAB
     Indication: Psoriasis
     Dosage: 300 MG, QMO
     Route: 058
     Dates: start: 202110
  2. CLOBETASOL [Suspect]
     Active Substance: CLOBETASOL
     Indication: Psoriasis
     Route: 061
  3. HYDROCORTISONE [Suspect]
     Active Substance: HYDROCORTISONE
     Indication: Psoriasis
     Route: 061
  4. BETAMETHASONE [Suspect]
     Active Substance: BETAMETHASONE
     Indication: Psoriasis
     Dosage: UNK
     Route: 065
  5. CALCIPOTRIENE [Concomitant]
     Active Substance: CALCIPOTRIENE
     Indication: Psoriasis
     Dosage: UNK
     Route: 065
  6. LEVOTHYROXINE [Concomitant]
     Active Substance: LEVOTHYROXINE
     Indication: Product used for unknown indication
     Dosage: 112 ?G/KG, (MICROGRAM/KILOGRAM)
     Route: 048
  7. CALCIPOTRIENE [Concomitant]
     Active Substance: CALCIPOTRIENE
     Indication: Product used for unknown indication
     Dosage: UNK
     Route: 065

REACTIONS (8)
  - Injection site reaction [Recovering/Resolving]
  - Arthralgia [Unknown]
  - Melanocytic naevus [Unknown]
  - Xerosis [Unknown]
  - Haemangioma of skin [Unknown]
  - Lentigo [Unknown]
  - Seborrhoeic keratosis [Unknown]
  - Drug ineffective [Unknown]
